FAERS Safety Report 10505775 (Version 1)
Quarter: 2014Q4

REPORT INFORMATION
  Report Type: Spontaneous
  Country: IT (occurrence: IT)
  Receive Date: 20141008
  Receipt Date: 20141008
  Transmission Date: 20150528
  Serious: Yes (Other)
  Sender: FDA-Public Use
  Company Number: PHHY2014IT130680

PATIENT
  Age: 43 Year
  Sex: Female

DRUGS (4)
  1. PAROXETINE [Suspect]
     Active Substance: PAROXETINE\PAROXETINE HYDROCHLORIDE
     Indication: DEPRESSION
     Dosage: 3 DF, QD
  2. PAROXETINE [Suspect]
     Active Substance: PAROXETINE\PAROXETINE HYDROCHLORIDE
     Indication: AGORAPHOBIA
  3. PAROXETINE [Suspect]
     Active Substance: PAROXETINE\PAROXETINE HYDROCHLORIDE
     Indication: PANIC DISORDER
  4. QUETIAPINE [Concomitant]
     Active Substance: QUETIAPINE
     Dosage: 25 MG, QD

REACTIONS (11)
  - Gastrointestinal disorder [Recovering/Resolving]
  - Musculoskeletal stiffness [Recovering/Resolving]
  - Drug withdrawal syndrome [Recovered/Resolved]
  - Depersonalisation [Recovering/Resolving]
  - Abdominal pain upper [Recovering/Resolving]
  - Hypoaesthesia [Recovering/Resolving]
  - Panic attack [Unknown]
  - Agitation [Recovered/Resolved]
  - Erosive oesophagitis [Unknown]
  - Anxiety [Recovered/Resolved]
  - Tremor [Recovered/Resolved]
